FAERS Safety Report 4956271-6 (Version None)
Quarter: 2006Q1

REPORT INFORMATION
  Report Type: 
  Country: None (occurrence: None)
  Receive Date: 20060323
  Receipt Date: 20060315
  Transmission Date: 20060701
  Serious: Yes (Hospitalization)
  Sender: FDA-Public Use
  Company Number: 2006030446

PATIENT
  Age: 59 Year
  Sex: Female
  Weight: 82 kg

DRUGS (10)
  1. TAHOR (ATORVASTATIN) [Suspect]
     Indication: ILL-DEFINED DISORDER
     Dates: end: 20060217
  2. URAPIDIL [Concomitant]
  3. CLOPIDOGREL BISULFATE [Concomitant]
  4. GLIBENCLAMIDE [Concomitant]
  5. NAFTIDROFURYL OXALATE [Concomitant]
  6. VERAPAMIL [Concomitant]
  7. FOLIC ACID [Concomitant]
  8. CYANOCOBALAMIN [Concomitant]
  9. DAFLON (DIOSMIN) [Concomitant]
  10. INDAPAMIDE [Concomitant]

REACTIONS (3)
  - EOSINOPHILIA [None]
  - RENAL SURGERY [None]
  - VASCULAR OPERATION [None]
